FAERS Safety Report 19368904 (Version 1)
Quarter: 2021Q2

REPORT INFORMATION
  Report Type: Spontaneous
  Country: CN (occurrence: CN)
  Receive Date: 20210602
  Receipt Date: 20210602
  Transmission Date: 20210717
  Serious: Yes (Other)
  Sender: FDA-Public Use
  Company Number: CN-009507513-2106CHN000073

PATIENT
  Age: 93 Year
  Sex: Female
  Weight: 63 kg

DRUGS (2)
  1. TIENAM [Suspect]
     Active Substance: CILASTATIN SODIUM\IMIPENEM
     Indication: URINARY TRACT INFECTION
     Dosage: 500 MILLIGRAM, TID/Q8H
     Route: 042
     Dates: start: 20210508, end: 20210513
  2. SODIUM CHLORIDE. [Concomitant]
     Active Substance: SODIUM CHLORIDE
     Indication: MEDICATION DILUTION
     Dosage: 100 MILLILITER, TID/Q8H
     Route: 042
     Dates: start: 20210508, end: 20210513

REACTIONS (8)
  - Hallucination [Recovered/Resolved]
  - White blood cell count increased [Unknown]
  - Body temperature increased [Unknown]
  - Speech disorder [Recovered/Resolved]
  - Dysphoria [Recovered/Resolved]
  - Agitation [Recovered/Resolved]
  - Drug ineffective [Unknown]
  - Staphylococcal infection [Unknown]

NARRATIVE: CASE EVENT DATE: 202105
